FAERS Safety Report 5016055-X (Version None)
Quarter: 2006Q2

REPORT INFORMATION
  Report Type: 
  Country: None (occurrence: None)
  Receive Date: 20060601
  Receipt Date: 20060524
  Transmission Date: 20061013
  Serious: Yes (Other)
  Sender: FDA-Public Use
  Company Number: CH-BOEHRINGER INGELHEIM PHARMACEUTICALS, INC.-2006-DE-02681SI

PATIENT
  Age: 71 Year
  Sex: Male
  Weight: 82 kg

DRUGS (13)
  1. SIFROL [Suspect]
     Indication: PARKINSON'S DISEASE
     Route: 048
     Dates: start: 20060214
  2. SYMMETREL [Suspect]
     Indication: PARKINSON'S DISEASE
     Route: 048
     Dates: start: 20060214
  3. SINEMET CR [Suspect]
     Indication: PARKINSON'S DISEASE
     Dosage: STRENGTH:50/200 MG, DAILY DOSE:250/1000MG
     Route: 048
     Dates: start: 20060214
  4. GLEEVEC [Concomitant]
     Indication: CHRONIC MYELOID LEUKAEMIA
     Route: 048
  5. SELIPRAN [Concomitant]
     Route: 048
  6. TORSEMIDE [Concomitant]
     Route: 048
  7. ALDACTONE [Concomitant]
     Route: 048
     Dates: end: 20060220
  8. DILATREND [Concomitant]
     Route: 048
  9. ASPIRIN [Concomitant]
     Route: 048
  10. SINTROM [Concomitant]
     Route: 048
  11. MAGNESIOCARD ORANGE [Concomitant]
     Route: 048
  12. NITRODERM [Concomitant]
     Route: 062
  13. RECORMON PS [Concomitant]
     Indication: ANAEMIA
     Route: 058

REACTIONS (8)
  - AGGRESSION [None]
  - AGITATION [None]
  - CARDIAC FAILURE [None]
  - HALLUCINATION [None]
  - NIGHTMARE [None]
  - OVERDOSE [None]
  - RENAL FAILURE ACUTE [None]
  - RIGHT VENTRICULAR FAILURE [None]
